FAERS Safety Report 14357133 (Version 2)
Quarter: 2018Q1

REPORT INFORMATION
  Report Type: Report from Study
  Country: KR (occurrence: KR)
  Receive Date: 20180105
  Receipt Date: 20180122
  Transmission Date: 20180509
  Serious: Yes (Death, Hospitalization)
  Sender: FDA-Public Use
  Company Number: KR-EISAI MEDICAL RESEARCH-EC-2017-034667

PATIENT
  Age: 57 Year
  Sex: Female
  Weight: 58 kg

DRUGS (12)
  1. BISACODYL. [Concomitant]
     Active Substance: BISACODYL
  2. CYMBALTA [Concomitant]
     Active Substance: DULOXETINE HYDROCHLORIDE
  3. IRCODON [Concomitant]
     Active Substance: OXYCODONE HYDROCHLORIDE
  4. HALAVEN [Suspect]
     Active Substance: ERIBULIN MESYLATE
     Indication: BREAST CANCER METASTATIC
     Route: 041
     Dates: start: 20170313, end: 20170508
  5. DAEHWA MAGNESIUM OXIDE [Concomitant]
  6. CELEBREC CAP [Concomitant]
  7. LYRICA [Concomitant]
     Active Substance: PREGABALIN
  8. HALAVEN [Suspect]
     Active Substance: ERIBULIN MESYLATE
     Route: 041
     Dates: start: 20170529, end: 20170605
  9. ATORVASTATIN [Concomitant]
     Active Substance: ATORVASTATIN
  10. MEGESTROL [Concomitant]
     Active Substance: MEGESTROL
  11. TARGIN [Concomitant]
     Active Substance: NALOXONE HYDROCHLORIDE\OXYCODONE HYDROCHLORIDE
  12. OXYCONTIN [Concomitant]
     Active Substance: OXYCODONE HYDROCHLORIDE

REACTIONS (1)
  - Malignant neoplasm progression [Fatal]

NARRATIVE: CASE EVENT DATE: 20170613
